FAERS Safety Report 10591875 (Version 1)
Quarter: 2014Q4

REPORT INFORMATION
  Report Type: Spontaneous
  Country: PL (occurrence: PL)
  Receive Date: 20141119
  Receipt Date: 20141119
  Transmission Date: 20150529
  Serious: Yes (Hospitalization)
  Sender: FDA-Public Use
  Company Number: PL-ACCORD-027109

PATIENT
  Age: 30 Year
  Sex: Female

DRUGS (4)
  1. HYDROXYPROGESTERONE [Concomitant]
     Active Substance: HYDROXYPROGESTERONE
     Route: 030
  2. HYDROXYPROGESTERONE [Concomitant]
     Active Substance: HYDROXYPROGESTERONE
     Dosage: NATURAL PROGESTERONE AT DOSE 2 ? 100 MG.
     Route: 067
  3. TACROLIMUS. [Suspect]
     Active Substance: TACROLIMUS
     Indication: HEART TRANSPLANT
     Dosage: TAKING 12 MG THEN DOSE INCREASED TO 20 MG PER DAY.
  4. BETAMETHASONE [Concomitant]
     Active Substance: BETAMETHASONE
     Dosage: TWO INTRAMUSCULAR 12 MG DOSES OF BETAMETHASONE IN AN INTERVAL OF 24 H.
     Route: 030

REACTIONS (9)
  - Exposure during pregnancy [Unknown]
  - Renal impairment [Unknown]
  - Urinary tract infection [Unknown]
  - Thrombocytopenia [Unknown]
  - Haemorrhage in pregnancy [Unknown]
  - Premature labour [Recovered/Resolved]
  - Anaemia [Unknown]
  - Overdose [Recovered/Resolved]
  - Hyperkalaemia [Unknown]
